FAERS Safety Report 21289600 (Version 1)
Quarter: 2022Q3

REPORT INFORMATION
  Report Type: Spontaneous
  Country: FR (occurrence: None)
  Receive Date: 20220902
  Receipt Date: 20220902
  Transmission Date: 20221027
  Serious: Yes (Hospitalization, Other)
  Sender: FDA-Public Use
  Company Number: 2022A302221

PATIENT
  Sex: Female

DRUGS (1)
  1. DAPAGLIFLOZIN [Suspect]
     Active Substance: DAPAGLIFLOZIN
     Indication: Diabetes mellitus
     Route: 048

REACTIONS (2)
  - Ketoacidosis [Recovering/Resolving]
  - Diabetic metabolic decompensation [Unknown]

NARRATIVE: CASE EVENT DATE: 20220801
